FAERS Safety Report 14267239 (Version 3)
Quarter: 2018Q1

REPORT INFORMATION
  Report Type: Spontaneous
  Country: US (occurrence: US)
  Receive Date: 20171211
  Receipt Date: 20180216
  Transmission Date: 20180508
  Serious: Yes (Hospitalization, Other)
  Sender: FDA-Public Use
  Company Number: US-PFIZER INC-2017525167

PATIENT
  Age: 84 Year
  Sex: Male

DRUGS (14)
  1. SUTENT [Suspect]
     Active Substance: SUNITINIB MALATE
     Indication: RENAL CANCER STAGE IV
     Dosage: 50 MG, DAILY
     Route: 048
     Dates: start: 20170922, end: 20171206
  2. SUTENT [Suspect]
     Active Substance: SUNITINIB MALATE
     Dosage: 25 MG, DAILY
     Route: 048
     Dates: start: 201709
  3. LISPRO INSULIN [Concomitant]
     Active Substance: INSULIN LISPRO
     Indication: DIABETES MELLITUS
     Dosage: UNK
  4. ATORVASTATIN [Concomitant]
     Active Substance: ATORVASTATIN
     Indication: CAROTID ARTERY OCCLUSION
  5. ATORVASTATIN [Concomitant]
     Active Substance: ATORVASTATIN
     Indication: DYSLIPIDAEMIA
  6. ATORVASTATIN [Concomitant]
     Active Substance: ATORVASTATIN
     Indication: CEREBROVASCULAR ACCIDENT
  7. ONDANSETRON [Concomitant]
     Active Substance: ONDANSETRON
     Indication: NAUSEA
     Dosage: 4 MG, AS NEEDED (EVERY 8 HOURS)
     Route: 048
  8. ONDANSETRON [Concomitant]
     Active Substance: ONDANSETRON
     Indication: VOMITING
  9. METFORMIN [Concomitant]
     Active Substance: METFORMIN HYDROCHLORIDE
     Indication: DIABETES MELLITUS
     Dosage: 250 MG, 1X/DAY
     Route: 048
  10. SIMVASTATIN. [Concomitant]
     Active Substance: SIMVASTATIN
     Dosage: 20 MG, 1X/DAY, NIGHTLY
     Route: 048
  11. SUTENT [Suspect]
     Active Substance: SUNITINIB MALATE
     Dosage: 25 MG, CYCLIC (Q 28 D, OUT OF 42 D)
     Route: 048
     Dates: start: 20170926
  12. LISINOPRIL. [Concomitant]
     Active Substance: LISINOPRIL
     Indication: HYPERTENSION
     Dosage: UNK
  13. FOLIC ACID. [Concomitant]
     Active Substance: FOLIC ACID
     Dosage: 1 MG, DAILY
     Route: 048
  14. LIDOCAINE. [Concomitant]
     Active Substance: LIDOCAINE
     Indication: ORAL PAIN
     Dosage: 15 ML, AS NEEDED (EVERY 3 HOURS)
     Route: 048

REACTIONS (16)
  - Inappropriate antidiuretic hormone secretion [Unknown]
  - Orthostatic hypotension [Unknown]
  - Syncope [Unknown]
  - Subgaleal haematoma [Unknown]
  - Asthenia [Unknown]
  - Hypomagnesaemia [Unknown]
  - Fatigue [Recovered/Resolved]
  - Condition aggravated [Unknown]
  - Thrombocytopenia [Unknown]
  - Decreased appetite [Unknown]
  - Hypovolaemia [Unknown]
  - Fall [Recovered/Resolved]
  - Hypertension [Unknown]
  - Neoplasm progression [Unknown]
  - Nausea [Unknown]
  - Troponin increased [Unknown]

NARRATIVE: CASE EVENT DATE: 2017
